FAERS Safety Report 13005244 (Version 1)
Quarter: 2016Q4

REPORT INFORMATION
  Report Type: Spontaneous
  Country: BR (occurrence: BR)
  Receive Date: 20161207
  Receipt Date: 20161207
  Transmission Date: 20170207
  Serious: Yes (Hospitalization)
  Sender: FDA-Public Use
  Company Number: PHHY2016BR103847

PATIENT
  Age: 60 Year
  Sex: Female
  Weight: 60.7 kg

DRUGS (18)
  1. RANITIDINE. [Concomitant]
     Active Substance: RANITIDINE
     Indication: GASTRIC DISORDER
     Dosage: 150 ML, QD FASTING MORNING
     Route: 048
     Dates: start: 20160715, end: 20160802
  2. SINVASTATINA [Concomitant]
     Active Substance: SIMVASTATIN
     Indication: BLOOD CHOLESTEROL ABNORMAL
     Dosage: 20 MG, UNK
     Route: 048
     Dates: start: 20160715
  3. BROMOPRIDA [Concomitant]
     Indication: NAUSEA
     Dosage: 10 MG, Q8H
     Route: 042
     Dates: start: 20160802, end: 20160803
  4. CAPTOPRIL. [Concomitant]
     Active Substance: CAPTOPRIL
     Indication: HYPERTENSION
     Dosage: 25 MG, UNK
     Route: 048
     Dates: start: 2006
  5. HEPARINA [Concomitant]
     Active Substance: HEPARIN SODIUM
     Indication: PRODUCT USED FOR UNKNOWN INDICATION
     Dosage: 5000 U/L, Q12H (5000UI EVERY 12 HOURS)
     Route: 058
     Dates: start: 20160716, end: 20160802
  6. PLASIL [Concomitant]
     Active Substance: METOCLOPRAMIDE HYDROCHLORIDE
     Indication: VOMITING
  7. DIPIRONA [Concomitant]
     Active Substance: METAMIZOLE
     Indication: PAIN
     Route: 048
     Dates: start: 20131210
  8. DIPIRONA [Concomitant]
     Active Substance: METAMIZOLE
     Dosage: 2 ML, UNK
     Route: 042
  9. RANITIDINE. [Concomitant]
     Active Substance: RANITIDINE
     Dosage: 50 MG, Q6H
     Route: 042
     Dates: start: 20160803
  10. AAS [Concomitant]
     Active Substance: ASPIRIN
     Indication: CARDIOVASCULAR EVENT PROPHYLAXIS
     Dosage: 100 ML, UNK
     Route: 048
     Dates: start: 20160715
  11. ATENOLOL. [Concomitant]
     Active Substance: ATENOLOL
     Indication: HYPERTENSION
     Dosage: 25 MG, QD
     Route: 048
     Dates: start: 20160716
  12. TASIGNA [Suspect]
     Active Substance: NILOTINIB
     Dosage: 400 MG, BID
     Route: 048
     Dates: start: 20100330, end: 20160711
  13. TRAMAL [Concomitant]
     Active Substance: TRAMADOL
     Indication: PAIN
     Dosage: 100 ML, Q6H
     Route: 042
     Dates: start: 20160715, end: 20160802
  14. MORPHINE [Concomitant]
     Active Substance: MORPHINE
     Indication: PAIN
     Dosage: 10MG, 3ML, Q6H SOS
     Route: 042
     Dates: start: 20160716, end: 20160802
  15. BROMOPRIDA [Concomitant]
     Indication: VOMITING
  16. TASIGNA [Suspect]
     Active Substance: NILOTINIB
     Indication: CHRONIC MYELOID LEUKAEMIA
     Dosage: 400 MG, BID
     Route: 048
     Dates: start: 20080917, end: 20100311
  17. ENALAPRIL [Concomitant]
     Active Substance: ENALAPRIL
     Indication: HYPERTENSION
     Dosage: 10 MG, Q6H
     Route: 048
     Dates: start: 20160802, end: 20160803
  18. PLASIL [Concomitant]
     Active Substance: METOCLOPRAMIDE HYDROCHLORIDE
     Indication: NAUSEA
     Dosage: 10 MG, Q6H
     Route: 042
     Dates: start: 20160802, end: 20160803

REACTIONS (2)
  - Peripheral arterial occlusive disease [Recovered/Resolved]
  - Road traffic accident [Unknown]

NARRATIVE: CASE EVENT DATE: 20160708
